FAERS Safety Report 11030802 (Version 1)
Quarter: 2015Q2

REPORT INFORMATION
  Report Type: Report from Study
  Country: US (occurrence: US)
  Receive Date: 20150415
  Receipt Date: 20150415
  Transmission Date: 20150821
  Serious: Yes (Other)
  Sender: FDA-Public Use
  Company Number: US-ABBVIE-15K-163-1372093-00

PATIENT
  Age: 57 Year
  Sex: Female

DRUGS (3)
  1. HUMIRA [Suspect]
     Active Substance: ADALIMUMAB
     Indication: PSORIASIS
     Route: 065
     Dates: start: 2011, end: 201405
  2. EFFEXOR [Concomitant]
     Active Substance: VENLAFAXINE HYDROCHLORIDE
     Indication: AFFECTIVE DISORDER
  3. LEVOTHYROXINE [Concomitant]
     Active Substance: LEVOTHYROXINE
     Indication: HYPOTHYROIDISM

REACTIONS (7)
  - Vaginal haemorrhage [Recovered/Resolved]
  - Endometriosis [Recovered/Resolved]
  - Cholelithiasis [Recovered/Resolved]
  - Pneumonia [Recovered/Resolved]
  - Carpal tunnel syndrome [Recovered/Resolved]
  - Dry skin [Unknown]
  - Psoriasis [Unknown]

NARRATIVE: CASE EVENT DATE: 201312
